FAERS Safety Report 8967773 (Version 2)
Quarter: 2013Q1

REPORT INFORMATION
  Report Type: Spontaneous
  Country: GB (occurrence: None)
  Receive Date: 20121210
  Receipt Date: 20121221
  Transmission Date: 20140127
  Serious: Yes (Hospitalization)
  Sender: FDA-Public Use
  Company Number: DSA_61294_2012

PATIENT
  Age: 66 Year
  Sex: Female

DRUGS (13)
  1. 5-FU [Suspect]
     Indication: COLORECTAL CANCER METASTATIC
     Route: 040
     Dates: start: 20120823, end: 20120823
  2. AFLIBERCEPT [Suspect]
     Indication: COLORECTAL CANCER METASTATIC
     Route: 042
     Dates: start: 20120823, end: 20120823
  3. IRINOTECAN [Suspect]
     Indication: COLORECTAL CANCER METASTATIC
     Route: 042
     Dates: start: 20120823, end: 20120823
  4. LEUCOVORIN [Suspect]
     Indication: COLORECTAL CANCER METASTATIC
     Route: 042
     Dates: start: 20120823, end: 20120823
  5. RANITIDINE [Concomitant]
  6. ANTIHISTAMINES [Concomitant]
  7. LEVOMEPROMAZINE [Concomitant]
  8. OPIODS [Concomitant]
  9. ANTIBIOTICS [Concomitant]
  10. ANTIINFECTIVES [Concomitant]
  11. DIFFLAM [Concomitant]
  12. LOPERAMIDE [Concomitant]
  13. G-CSF [Concomitant]

REACTIONS (1)
  - Urinary tract infection [None]
